FAERS Safety Report 5868672-2 (Version None)
Quarter: 2008Q3

REPORT INFORMATION
  Report Type: 
  Country: None (occurrence: None)
  Receive Date: 20080903
  Receipt Date: 20080826
  Transmission Date: 20090109
  Serious: Yes (Hospitalization)
  Sender: FDA-Public Use
  Company Number: PHHY2008FR19165

PATIENT
  Age: 71 Year
  Sex: Female

DRUGS (3)
  1. TAREG [Suspect]
     Indication: HYPERTENSION
     Dosage: 80 MG, UNK
     Dates: end: 20080209
  2. BI-PROFENID [Suspect]
     Dosage: 0.5 MG, BID
     Dates: end: 20080209
  3. MODURETIC 5-50 [Suspect]
     Dosage: 1 DF, QD
     Dates: end: 20080209

REACTIONS (12)
  - BONE PAIN [None]
  - DEHYDRATION [None]
  - DRUG INTERACTION [None]
  - GENERAL PHYSICAL HEALTH DETERIORATION [None]
  - HAEMODIALYSIS [None]
  - HYPERKALAEMIA [None]
  - HYPONATRAEMIA [None]
  - MIOSIS [None]
  - OVERDOSE [None]
  - RENAL FAILURE ACUTE [None]
  - SOMNOLENCE [None]
  - TONGUE DRY [None]
